FAERS Safety Report 8767284 (Version 1)
Quarter: 2012Q4

REPORT INFORMATION
  Report Type: 
  Country: IT (occurrence: IT)
  Receive Date: 20120904
  Receipt Date: 20120904
  Transmission Date: 20130627
  Serious: Yes (Hospitalization)
  Sender: FDA-Public Use
  Company Number: IT-GLAXOSMITHKLINE-B0827144A

PATIENT
  Age: 0 Year
  Sex: Male

DRUGS (1)
  1. ZOVIRAX [Suspect]
     Indication: VARICELLA
     Dosage: 4800MG per day
     Route: 048
     Dates: start: 20120403, end: 20120403

REACTIONS (3)
  - Abdominal pain [Recovered/Resolved]
  - Vomiting [Unknown]
  - Drug administration error [Unknown]
